FAERS Safety Report 7179279-1 (Version None)
Quarter: 2010Q4

REPORT INFORMATION
  Report Type: 
  Country: None (occurrence: None)
  Receive Date: 20101221
  Receipt Date: 20101213
  Transmission Date: 20110411
  Serious: Yes (Hospitalization)
  Sender: FDA-Public Use
  Company Number: NL-MILLENNIUM PHARMACEUTICALS, INC.-2010-06015

PATIENT

DRUGS (14)
  1. VELCADE [Suspect]
     Indication: MULTIPLE MYELOMA
     Dosage: 2 MG, UNK
     Dates: start: 20090120, end: 20090324
  2. DEXAMETHASONE [Concomitant]
     Indication: MULTIPLE MYELOMA
     Dosage: UNK
     Dates: start: 20090120, end: 20090328
  3. RED BLOOD CELLS [Concomitant]
     Dosage: UNK
     Route: 042
     Dates: start: 20090216, end: 20090413
  4. TRAMADOL HCL [Concomitant]
     Dosage: 150 MG, UNK
     Route: 048
     Dates: start: 20090316, end: 20090422
  5. TRICHLOROACETIC ACID [Concomitant]
     Dosage: UNK
     Route: 045
     Dates: start: 20090325, end: 20090325
  6. APD [Concomitant]
     Dosage: UNK
     Route: 042
     Dates: end: 20090326
  7. ACETAMINOPHEN [Concomitant]
     Dosage: 3000 MG, UNK
     Route: 048
     Dates: start: 20090213
  8. NOVORAPID [Concomitant]
     Indication: DIABETES MELLITUS
     Dosage: UNK
     Route: 058
  9. OMEPRAZOLE [Concomitant]
     Dosage: 40 MG, UNK
     Route: 048
  10. MOVICOLON [Concomitant]
     Route: 048
  11. PRIMPERAN                          /00041901/ [Concomitant]
     Dosage: UNK
     Route: 054
     Dates: start: 20090121, end: 20090324
  12. FUROSEMIDE [Concomitant]
     Dosage: 40 MG, UNK
     Route: 042
     Dates: start: 20090326, end: 20090326
  13. KYTRIL [Concomitant]
     Dosage: 1 MG, UNK
     Route: 042
     Dates: start: 20090120, end: 20090323
  14. TEMAZEPAM [Concomitant]
     Dosage: 10 MG, UNK
     Dates: start: 20090401

REACTIONS (1)
  - ANAL FISSURE [None]
